FAERS Safety Report 7975996-1 (Version None)
Quarter: 2011Q4

REPORT INFORMATION
  Report Type: 
  Country: None (occurrence: None)
  Receive Date: 20111213
  Receipt Date: 20111010
  Transmission Date: 20120403
  Serious: Yes (Other)
  Sender: FDA-Public Use
  Company Number: US-AMGEN-USASP2011052158

PATIENT
  Sex: Female

DRUGS (4)
  1. METHOTREXATE [Concomitant]
     Dates: end: 20110701
  2. ENBREL [Suspect]
     Indication: RHEUMATOID ARTHRITIS
     Dosage: 25 MG, 2 TIMES/WK
     Dates: start: 20010101
  3. ENBREL [Suspect]
     Dosage: 50 MG, QWK
     Dates: start: 20110701
  4. ENBREL [Suspect]
     Dosage: 25 MG, QWK
     Dates: end: 20110701

REACTIONS (5)
  - PAIN IN EXTREMITY [None]
  - MUSCULOSKELETAL STIFFNESS [None]
  - MOBILITY DECREASED [None]
  - MALAISE [None]
  - HEPATIC ENZYME INCREASED [None]
